FAERS Safety Report 25050449 (Version 1)
Quarter: 2025Q1

REPORT INFORMATION
  Report Type: Spontaneous
  Country: US (occurrence: None)
  Receive Date: 20250307
  Receipt Date: 20250307
  Transmission Date: 20250409
  Serious: No
  Sender: FDA-CTU
  Company Number: None

PATIENT
  Age: 28 Year
  Sex: Male
  Weight: 76.5 kg

DRUGS (1)
  1. FINASTERIDE [Suspect]
     Active Substance: FINASTERIDE
     Indication: Androgenetic alopecia
     Dosage: 1 CAPSULE EVERY 12 HOURS ORAL
     Route: 048
     Dates: start: 20240807, end: 20240821

REACTIONS (10)
  - Anhedonia [None]
  - Brain fog [None]
  - Amnesia [None]
  - Insomnia [None]
  - Suicidal ideation [None]
  - Muscle atrophy [None]
  - Arthralgia [None]
  - Neuropathy peripheral [None]
  - Asteatosis [None]
  - Crepitations [None]

NARRATIVE: CASE EVENT DATE: 20240821
